FAERS Safety Report 9086510 (Version 1)
Quarter: 2013Q1

REPORT INFORMATION
  Report Type: Report from Study
  Country: US (occurrence: US)
  Receive Date: 20130131
  Receipt Date: 20130131
  Transmission Date: 20140127
  Serious: No
  Sender: FDA-Public Use
  Company Number: US-ABBOTT-12P-163-0920630-00

PATIENT
  Sex: Female
  Weight: 127.12 kg

DRUGS (10)
  1. HUMIRA [Suspect]
     Indication: PSORIATIC ARTHROPATHY
     Route: 058
     Dates: start: 200706
  2. MYCOPHENOLATE [Concomitant]
     Indication: MULTIPLE SYSTEM ATROPHY
  3. CARBIDOPA LEVODOPA [Concomitant]
     Indication: DYSTONIA
     Dosage: 1 TAB
  4. HUMALOG [Concomitant]
     Indication: DIABETES MELLITUS
  5. LANTUS [Concomitant]
     Indication: DIABETES MELLITUS
  6. CELLCEPT [Concomitant]
     Indication: AUTOIMMUNE HEPATITIS
     Dosage: 4 TABLET
  7. DIOVAN [Concomitant]
     Indication: BLOOD PRESSURE
     Dosage: 1/2 TAB
  8. ACIPHEX [Concomitant]
     Indication: GASTROOESOPHAGEAL REFLUX DISEASE
     Dosage: 1 TAB AT HOUR OF SLEEP
  9. HYDROCHLOROTHIAZIDE [Concomitant]
     Indication: PRODUCT USED FOR UNKNOWN INDICATION
     Dosage: 1-4 TABS DAILY
  10. DISTOLIC [Concomitant]
     Indication: BLOOD PRESSURE
     Dosage: 1/2 TAB

REACTIONS (9)
  - Dystonia [Recovered/Resolved]
  - Feeling abnormal [Recovered/Resolved]
  - Therapeutic response unexpected [Not Recovered/Not Resolved]
  - Incorrect drug administration duration [Unknown]
  - Dystonia [Unknown]
  - Restless legs syndrome [Unknown]
  - Device malfunction [Unknown]
  - Drug dose omission [Unknown]
  - Injection related reaction [Unknown]
